FAERS Safety Report 8168638 (Version 7)
Quarter: 2013Q2

REPORT INFORMATION
  Report Type: Spontaneous
  Country: US (occurrence: US)
  Receive Date: 20111005
  Receipt Date: 20130516
  Transmission Date: 20140414
  Serious: Yes (Hospitalization, Other)
  Sender: FDA-Public Use
  Company Number: US-BIOGENIDEC-2011BI037188

PATIENT
  Age: 43 Year
  Sex: Female

DRUGS (5)
  1. AVONEX [Suspect]
     Indication: MULTIPLE SCLEROSIS
     Route: 030
     Dates: start: 19960501
  2. AVONEX [Suspect]
     Indication: MULTIPLE SCLEROSIS
     Route: 030
     Dates: start: 20110516, end: 201108
  3. AVONEX [Suspect]
     Indication: MULTIPLE SCLEROSIS
     Route: 030
  4. STEROIDS (NOS) [Concomitant]
     Indication: MULTIPLE SCLEROSIS
  5. ASPIRIN [Concomitant]

REACTIONS (8)
  - Intervertebral disc protrusion [Recovered/Resolved]
  - Intervertebral disc degeneration [Recovered/Resolved]
  - Exostosis [Recovered/Resolved]
  - Post laminectomy syndrome [Recovered/Resolved]
  - Spinal column stenosis [Recovered/Resolved]
  - Knee arthroplasty [Not Recovered/Not Resolved]
  - Influenza like illness [Recovered/Resolved]
  - Anxiety [Recovered/Resolved]
